FAERS Safety Report 7350674-0 (Version None)
Quarter: 2011Q1

REPORT INFORMATION
  Report Type: 
  Country: None (occurrence: None)
  Receive Date: 20110314
  Receipt Date: 20110303
  Transmission Date: 20110831
  Serious: Yes (Hospitalization)
  Sender: FDA-Public Use
  Company Number: DK-JNJFOC-20110302711

PATIENT
  Age: 60 Year
  Sex: Male
  Weight: 90 kg

DRUGS (9)
  1. FOLIMET [Concomitant]
     Route: 048
  2. ENBREL [Suspect]
     Indication: SERONEGATIVE ARTHRITIS
  3. PARACETAMOL [Concomitant]
     Route: 048
  4. REMICADE [Suspect]
     Indication: SERONEGATIVE ARTHRITIS
     Route: 042
  5. METOJECT [Concomitant]
  6. IBUPROFEN [Concomitant]
     Route: 048
  7. SIMVASTATIN [Concomitant]
     Route: 048
  8. ALENDRONATE SODIUM [Concomitant]
     Route: 048
  9. UNIKALK SENIOR [Concomitant]

REACTIONS (1)
  - LANGERHANS' CELL HISTIOCYTOSIS [None]
